FAERS Safety Report 8434217-6 (Version None)
Quarter: 2012Q2

REPORT INFORMATION
  Report Type: 
  Country: None (occurrence: None)
  Receive Date: 20120613
  Receipt Date: 20120606
  Transmission Date: 20120825
  Serious: Yes (Life-Threatening)
  Sender: FDA-Public Use
  Company Number: JP-CELGENEUS-087-50794-12061680

PATIENT
  Sex: Female
  Weight: 49 kg

DRUGS (22)
  1. DECADRON [Concomitant]
     Route: 065
     Dates: start: 20111107, end: 20111113
  2. COTRIM [Concomitant]
     Route: 065
     Dates: start: 20111202, end: 20111215
  3. PREDNISOLONE [Concomitant]
     Route: 065
     Dates: start: 20111202, end: 20111213
  4. COROHERSER R [Concomitant]
     Route: 065
     Dates: start: 20111202, end: 20111213
  5. KYTRIL [Concomitant]
     Route: 065
     Dates: start: 20111107, end: 20111117
  6. CEFMETAZOLE SODIUM [Concomitant]
     Route: 065
     Dates: start: 20111127, end: 20111202
  7. NICORANDIS [Concomitant]
     Route: 065
     Dates: start: 20111202, end: 20111213
  8. SOLU-MEDROL [Concomitant]
     Route: 065
     Dates: start: 20111202, end: 20111213
  9. GANCICLOVIR [Concomitant]
     Route: 065
     Dates: start: 20111203, end: 20111205
  10. VENILON I [Concomitant]
     Route: 065
     Dates: start: 20111203, end: 20111205
  11. LUINESIN [Concomitant]
     Route: 065
     Dates: start: 20111127, end: 20111202
  12. GANCICLOVIR [Concomitant]
     Route: 065
     Dates: start: 20111202, end: 20111213
  13. VENILON I [Concomitant]
     Route: 065
     Dates: start: 20111202, end: 20111213
  14. NICORANDIS [Concomitant]
     Route: 065
  15. CANDESARTAN CILEXETIL [Concomitant]
     Route: 065
  16. CANDESARTAN CILEXETIL [Concomitant]
     Route: 065
     Dates: start: 20111202, end: 20111213
  17. COROHERSER R [Concomitant]
     Route: 065
  18. CIPROFLOXACIN [Concomitant]
     Route: 065
     Dates: start: 20111202, end: 20111213
  19. SOLU-MEDROL [Concomitant]
     Route: 065
     Dates: start: 20111203, end: 20111205
  20. PREDNISOLONE [Concomitant]
     Route: 065
     Dates: start: 20111206, end: 20120102
  21. VIDAZA [Suspect]
     Dosage: 75 MILLIGRAM/SQ. METER
     Route: 058
     Dates: start: 20111107, end: 20111113
  22. CIPROFLOXACIN [Concomitant]
     Route: 065
     Dates: start: 20111202, end: 20111213

REACTIONS (5)
  - LUNG INFECTION [None]
  - PYREXIA [None]
  - C-REACTIVE PROTEIN INCREASED [None]
  - FEBRILE NEUTROPENIA [None]
  - HYPOXIA [None]
